FAERS Safety Report 24233664 (Version 1)
Quarter: 2024Q3

REPORT INFORMATION
  Report Type: Spontaneous
  Country: US (occurrence: US)
  Receive Date: 20240821
  Receipt Date: 20240821
  Transmission Date: 20241016
  Serious: No
  Sender: PERRIGO
  Company Number: US-PERRIGO-24US001653

PATIENT
  Age: 68 Year
  Sex: Female
  Weight: 72.562 kg

DRUGS (5)
  1. MINOXIDIL [Suspect]
     Active Substance: MINOXIDIL
     Indication: Alopecia
     Dosage: 1 ML, BID
     Route: 061
     Dates: start: 20240202
  2. VALSARTAN [Concomitant]
     Active Substance: VALSARTAN
     Indication: Hypertension
     Dosage: UNKNOWN, UNKNOWN
     Route: 065
     Dates: start: 2021
  3. CENTRUM SILVER [ASCORBIC ACID;CALCIUM;MINERALS NOS;RETINOL;TOCOPHERYL [Concomitant]
     Indication: Supplementation therapy
     Dosage: UNKNOWN,UNKNOWN
     Route: 065
     Dates: start: 2022
  4. PREVAGEN [APOAEQUORIN] [Concomitant]
     Indication: Routine health maintenance
     Dosage: UNKNOWN,UNKNOWN
     Route: 065
     Dates: start: 202312
  5. SILICON DIOXIDE [Concomitant]
     Active Substance: SILICON DIOXIDE
     Indication: Alopecia
     Dosage: UNKNOWN,UNKNOWN
     Route: 065
     Dates: start: 202311

REACTIONS (2)
  - Application site pruritus [Recovered/Resolved]
  - Product administered at inappropriate site [Unknown]

NARRATIVE: CASE EVENT DATE: 20240201
